FAERS Safety Report 23345932 (Version 2)
Quarter: 2024Q1

REPORT INFORMATION
  Report Type: Spontaneous
  Country: US (occurrence: US)
  Receive Date: 20231228
  Receipt Date: 20240216
  Transmission Date: 20240409
  Serious: Yes (Other)
  Sender: FDA-Public Use
  Company Number: US-BAYER-2023A182444

PATIENT
  Age: 46 Year
  Sex: Male

DRUGS (2)
  1. KOVALTRY [Suspect]
     Active Substance: ANTIHEMOPHILIC FACTOR, HUMAN RECOMBINANT
     Dosage: 3750 IU
     Route: 042
     Dates: start: 20231121
  2. KOVALTRY [Suspect]
     Active Substance: ANTIHEMOPHILIC FACTOR, HUMAN RECOMBINANT
     Dosage: 3750 IU
     Route: 042
     Dates: start: 20231204

REACTIONS (2)
  - Spontaneous haemorrhage [None]
  - Spontaneous haemorrhage [None]

NARRATIVE: CASE EVENT DATE: 20231121
